FAERS Safety Report 24072638 (Version 1)
Quarter: 2024Q3

REPORT INFORMATION
  Report Type: Spontaneous
  Country: US (occurrence: US)
  Receive Date: 20240710
  Receipt Date: 20240710
  Transmission Date: 20241016
  Serious: No
  Sender: BIOVITRUM
  Company Number: US-BIOVITRUM-2024-US-007120

PATIENT
  Age: 25 Year
  Sex: Female

DRUGS (1)
  1. KINERET [Suspect]
     Active Substance: ANAKINRA
     Indication: Pericarditis
     Dosage: DAILY
     Route: 058
     Dates: start: 20230421

REACTIONS (9)
  - Injection site pain [Unknown]
  - Injection site erythema [Unknown]
  - Product dose omission issue [Unknown]
  - Dyspnoea [Unknown]
  - Chest pain [Unknown]
  - International normalised ratio increased [Unknown]
  - Injection site bruising [Unknown]
  - Injection site haemorrhage [Unknown]
  - Injection site reaction [Unknown]
